FAERS Safety Report 19288628 (Version 1)
Quarter: 2021Q2

REPORT INFORMATION
  Report Type: Spontaneous
  Country: DE (occurrence: DE)
  Receive Date: 20210522
  Receipt Date: 20210522
  Transmission Date: 20210717
  Serious: Yes (Other)
  Sender: FDA-Public Use
  Company Number: NVSC2021DE104954

PATIENT
  Age: 83 Year
  Sex: Female

DRUGS (3)
  1. OXAZEPAM. [Suspect]
     Active Substance: OXAZEPAM
     Dosage: 0.5 DF
     Route: 048
     Dates: start: 2016
  2. OXAZEPAM. [Suspect]
     Active Substance: OXAZEPAM
     Dosage: 20 MG
     Route: 048
     Dates: start: 2016
  3. OXAZEPAM. [Suspect]
     Active Substance: OXAZEPAM
     Indication: SLEEP DISORDER
     Dosage: 10 MG, QD
     Route: 048
     Dates: start: 1981, end: 2016

REACTIONS (3)
  - Wrong technique in product usage process [Unknown]
  - Drug dependence [Not Recovered/Not Resolved]
  - Therapeutic product effect decreased [Unknown]
